FAERS Safety Report 11648977 (Version 2)
Quarter: 2015Q4

REPORT INFORMATION
  Report Type: Report from Study
  Country: BR (occurrence: BR)
  Receive Date: 20151021
  Receipt Date: 20151103
  Transmission Date: 20160304
  Serious: Yes (Death, Hospitalization, Other)
  Sender: FDA-Public Use
  Company Number: PHHY2014BR158267

PATIENT
  Age: 84 Year
  Sex: Female
  Weight: 66 kg

DRUGS (3)
  1. AFINITOR [Suspect]
     Active Substance: EVEROLIMUS
     Dosage: 5 MG, UNK
     Route: 065
     Dates: end: 20151005
  2. AFINITOR [Suspect]
     Active Substance: EVEROLIMUS
     Indication: BREAST CANCER
     Dosage: 1 DF, QHS
     Route: 065
     Dates: start: 20141028
  3. APROVEL [Concomitant]
     Active Substance: IRBESARTAN
     Indication: HYPERTENSION
     Dosage: 1 DF, QD
     Route: 065
     Dates: start: 2005

REACTIONS (15)
  - Hypophagia [Not Recovered/Not Resolved]
  - Muscle spasms [Unknown]
  - Weight decreased [Unknown]
  - Lung infection [Unknown]
  - Blood sodium decreased [Recovering/Resolving]
  - Disorientation [Unknown]
  - Thrombosis [Unknown]
  - Coma [Unknown]
  - Cellulitis [Recovering/Resolving]
  - Fatigue [Unknown]
  - Bone pain [Unknown]
  - Death [Fatal]
  - Confusional state [Unknown]
  - Infrequent bowel movements [Unknown]
  - Nausea [Not Recovered/Not Resolved]

NARRATIVE: CASE EVENT DATE: 20151015
